FAERS Safety Report 16897136 (Version 1)
Quarter: 2019Q4

REPORT INFORMATION
  Report Type: Spontaneous
  Country: US (occurrence: US)
  Receive Date: 20191009
  Receipt Date: 20191009
  Transmission Date: 20200122
  Serious: No
  Sender: FDA-Public Use
  Company Number: US-LUPIN HEALTHCARE (UK) LIMITED-2019-00664

PATIENT
  Sex: Male

DRUGS (2)
  1. AZITHROMYCIN TABLETS USP, 250 MG [Suspect]
     Active Substance: AZITHROMYCIN ANHYDROUS
     Indication: PRODUCT USED FOR UNKNOWN INDICATION
     Dosage: UNK
     Route: 065
     Dates: start: 20190125
  2. AZITHROMYCIN TABLETS USP, 250 MG [Suspect]
     Active Substance: AZITHROMYCIN ANHYDROUS
     Dosage: UNK
     Route: 065
     Dates: start: 20190129

REACTIONS (2)
  - Product packaging difficult to open [Unknown]
  - Product package associated injury [Unknown]
